FAERS Safety Report 25226087 (Version 1)
Quarter: 2025Q2

REPORT INFORMATION
  Report Type: Spontaneous
  Country: US (occurrence: US)
  Receive Date: 20250422
  Receipt Date: 20250422
  Transmission Date: 20250717
  Serious: Yes (Death, Hospitalization, Other)
  Sender: SANOFI AVENTIS
  Company Number: US-SA-SAC20240403000880

PATIENT
  Age: 81 Year
  Sex: Female
  Weight: 59.01 kg

DRUGS (18)
  1. DUPIXENT [Suspect]
     Active Substance: DUPILUMAB
     Indication: Asthma
     Route: 058
     Dates: start: 20240312, end: 20240312
  2. DUPIXENT [Suspect]
     Active Substance: DUPILUMAB
     Dosage: 300 MG, QOW
     Route: 058
     Dates: start: 202503
  3. PREDNISONE [Concomitant]
     Active Substance: PREDNISONE
  4. LASIX [Concomitant]
     Active Substance: FUROSEMIDE
  5. LISINOPRIL [Concomitant]
     Active Substance: LISINOPRIL
  6. IMDUR [Concomitant]
     Active Substance: ISOSORBIDE MONONITRATE
  7. PROTONIX [Concomitant]
     Active Substance: PANTOPRAZOLE SODIUM
  8. SINGULAIR [Concomitant]
     Active Substance: MONTELUKAST SODIUM
  9. ROXANOL [Concomitant]
     Active Substance: MORPHINE SULFATE
  10. INSULIN ASPART [Concomitant]
     Active Substance: INSULIN ASPART
  11. ALBUTEROL [Concomitant]
     Active Substance: ALBUTEROL
  12. SIMVASTATIN [Concomitant]
     Active Substance: SIMVASTATIN
  13. AMLODIPINE [Concomitant]
     Active Substance: AMLODIPINE BESYLATE
  14. BASAGLAR [Concomitant]
     Active Substance: INSULIN GLARGINE
  15. LORAZEPAM [Concomitant]
     Active Substance: LORAZEPAM
  16. BUDESONIDE [Concomitant]
     Active Substance: BUDESONIDE
  17. DUONEB [Concomitant]
     Active Substance: ALBUTEROL SULFATE\IPRATROPIUM BROMIDE
  18. JANUMET [Concomitant]
     Active Substance: METFORMIN HYDROCHLORIDE\SITAGLIPTIN PHOSPHATE

REACTIONS (6)
  - COVID-19 [Fatal]
  - Cardiopulmonary failure [Fatal]
  - Cholecystitis [Unknown]
  - Pleural effusion [Unknown]
  - Atelectasis [Unknown]
  - Drug intolerance [Unknown]

NARRATIVE: CASE EVENT DATE: 20250202
